FAERS Safety Report 14933959 (Version 1)
Quarter: 2018Q2

REPORT INFORMATION
  Report Type: Spontaneous
  Country: US (occurrence: US)
  Receive Date: 20180504
  Receipt Date: 20180504
  Transmission Date: 20180711
  Serious: Yes (Death)
  Sender: FDA-Public Use
  Company Number: None

PATIENT
  Sex: Male

DRUGS (33)
  1. VALACYCLOVIR [Concomitant]
     Active Substance: VALACYCLOVIR HYDROCHLORIDE
  2. OMEPRAZOLE. [Concomitant]
     Active Substance: OMEPRAZOLE
  3. ZOLPIDEM [Concomitant]
     Active Substance: ZOLPIDEM\ZOLPIDEM TARTRATE
  4. ROSUVASTATIN. [Concomitant]
     Active Substance: ROSUVASTATIN
  5. INSULIN [Concomitant]
     Active Substance: INSULIN NOS
  6. ALCOHOL. [Concomitant]
     Active Substance: ALCOHOL
  7. LIDOCAINE. [Concomitant]
     Active Substance: LIDOCAINE
  8. OMEPRAZOLE. [Concomitant]
     Active Substance: OMEPRAZOLE
  9. LIDOCAINE. [Concomitant]
     Active Substance: LIDOCAINE
  10. WARFARIN [Concomitant]
     Active Substance: WARFARIN
  11. ALLOPURINOL. [Concomitant]
     Active Substance: ALLOPURINOL
  12. VALGANCICLOV [Concomitant]
  13. ROSUVASTATIN. [Concomitant]
     Active Substance: ROSUVASTATIN
  14. CLOPIDOGREL [Concomitant]
     Active Substance: CLOPIDOGREL BISULFATE
  15. ALLOPURINOL. [Concomitant]
     Active Substance: ALLOPURINOL
  16. AMOXICILLIN. [Concomitant]
     Active Substance: AMOXICILLIN
  17. OXYCODONE AND ACETAMINOPHEN [Concomitant]
     Active Substance: ACETAMINOPHEN\OXYCODONE HYDROCHLORIDE
  18. ADVAIR DISKUS [Concomitant]
     Active Substance: FLUTICASONE PROPIONATE\SALMETEROL XINAFOATE
  19. DICLOFENAC [Concomitant]
     Active Substance: DICLOFENAC
  20. NYSTATIN. [Concomitant]
     Active Substance: NYSTATIN
  21. CYCLOSPORINE. [Concomitant]
     Active Substance: CYCLOSPORINE
  22. CLOPIDOGREL [Concomitant]
     Active Substance: CLOPIDOGREL BISULFATE
  23. FREESTYLE [Concomitant]
  24. SODIUM BICARBONATE. [Concomitant]
     Active Substance: SODIUM BICARBONATE
  25. VALACYCLOVIR [Concomitant]
     Active Substance: VALACYCLOVIR HYDROCHLORIDE
  26. OSELTAMIVIR [Concomitant]
     Active Substance: OSELTAMIVIR
  27. LIDOCAINE. [Concomitant]
     Active Substance: LIDOCAINE
  28. AMOXICLAV [Concomitant]
     Active Substance: AMOXICILLIN\CLAVULANIC ACID
  29. MYCOPHENOLATE [Suspect]
     Active Substance: MYCOPHENOLIC ACID
     Indication: TRANSPLANT
     Route: 048
     Dates: start: 20160805
  30. MYCOPHENOLATE [Suspect]
     Active Substance: MYCOPHENOLIC ACID
     Indication: TRANSPLANT
     Route: 048
     Dates: start: 20160805
  31. METOPROL SUCCINATE [Concomitant]
     Active Substance: METOPROLOL SUCCINATE
  32. HUMALOG [Concomitant]
     Active Substance: INSULIN LISPRO
  33. CHLORHEX GLU SOL [Concomitant]

REACTIONS (1)
  - Death [None]
